FAERS Safety Report 6060248-X (Version None)
Quarter: 2009Q1

REPORT INFORMATION
  Report Type: 
  Country: None (occurrence: None)
  Receive Date: 20090129
  Receipt Date: 20090119
  Transmission Date: 20090719
  Serious: Yes (Other)
  Sender: FDA-Public Use
  Company Number: 2009AP000256

PATIENT
  Age: 50 Year
  Sex: Male

DRUGS (1)
  1. AMLODIPINE BESYLATE [Suspect]
     Indication: HYPERTENSION

REACTIONS (5)
  - CAPILLARITIS [None]
  - HAEMATOSPERMIA [None]
  - HAEMATURIA [None]
  - PURPURA [None]
  - SCHAMBERG'S DISEASE [None]
